FAERS Safety Report 20851958 (Version 5)
Quarter: 2024Q2

REPORT INFORMATION
  Report Type: Other
  Country: GB (occurrence: None)
  Receive Date: 20220520
  Receipt Date: 20240531
  Transmission Date: 20240716
  Serious: No
  Sender: FDA-Public Use
  Company Number: GB-ROCHE-3094853

PATIENT
  Age: 26 Year
  Sex: Female
  Weight: 54 kg

DRUGS (24)
  1. OCRELIZUMAB [Suspect]
     Active Substance: OCRELIZUMAB
     Indication: Relapsing-remitting multiple sclerosis
     Route: 042
     Dates: start: 20190710, end: 20190710
  2. OCRELIZUMAB [Suspect]
     Active Substance: OCRELIZUMAB
     Route: 042
     Dates: start: 20200306, end: 20200306
  3. OCRELIZUMAB [Suspect]
     Active Substance: OCRELIZUMAB
     Route: 042
     Dates: start: 20190724, end: 20190724
  4. OCRELIZUMAB [Suspect]
     Active Substance: OCRELIZUMAB
     Route: 042
     Dates: start: 20231208, end: 20231208
  5. OCRELIZUMAB [Suspect]
     Active Substance: OCRELIZUMAB
     Route: 042
     Dates: start: 20220426, end: 20220426
  6. OCRELIZUMAB [Suspect]
     Active Substance: OCRELIZUMAB
     Route: 042
     Dates: start: 20201120, end: 20201120
  7. OCRELIZUMAB [Suspect]
     Active Substance: OCRELIZUMAB
     Route: 042
     Dates: start: 20230110, end: 20230110
  8. OCRELIZUMAB [Suspect]
     Active Substance: OCRELIZUMAB
     Route: 042
     Dates: start: 20210730, end: 20210730
  9. METHYLPREDNISOLONE [Concomitant]
     Active Substance: METHYLPREDNISOLONE
     Dosage: 24-JUL-2019,  26-APR-2022, 06-MAR-2020, 20-NOV-2020, 30-JUL-2021
     Route: 042
     Dates: start: 20190710, end: 20190710
  10. CHLORPHENIRAMINE MALEATE [Concomitant]
     Active Substance: CHLORPHENIRAMINE MALEATE
     Dosage: 26-APR-2022/26-APR-2022?06-MAR-2020/06-MAR-2020?24-JUL-2019/24-JUL-2019?10-JUL-2019/10-JUL-2019?10-J
     Route: 042
     Dates: start: 20201120, end: 20201120
  11. ACETAMINOPHEN [Concomitant]
     Active Substance: ACETAMINOPHEN
     Dosage: 20-NOV-2020/20-NOV-2020?24-JUL-2019/24-JUL-2019?26-APR-2022/26-APR-2022?06-MAR-2020/06-MAR-2020
     Route: 048
     Dates: start: 20190710, end: 20190710
  12. ACETAMINOPHEN [Concomitant]
     Active Substance: ACETAMINOPHEN
     Route: 048
     Dates: start: 20210730, end: 20210730
  13. VITAMIN D3 [Concomitant]
     Active Substance: CHOLECALCIFEROL
  14. GABAPENTIN [Concomitant]
     Active Substance: GABAPENTIN
     Dates: end: 202104
  15. GABAPENTIN [Concomitant]
     Active Substance: GABAPENTIN
     Route: 048
     Dates: start: 202104
  16. FEXOFENADINE [Concomitant]
     Active Substance: FEXOFENADINE HYDROCHLORIDE
  17. MELATONIN [Concomitant]
     Active Substance: MELATONIN
     Dates: end: 202309
  18. NAPROXEN [Concomitant]
     Active Substance: NAPROXEN
     Dosage: SENSORY CHANGES IN RIGHT ARM/SHOULDER
     Route: 048
     Dates: start: 20210619, end: 202107
  19. NAPROXEN [Concomitant]
     Active Substance: NAPROXEN
     Route: 048
  20. ASTRAZENECA COVID-19 VACCINE [Concomitant]
     Active Substance: AZD-1222
     Indication: Prophylaxis
     Route: 030
     Dates: start: 20210519, end: 20210519
  21. CODEINE [Concomitant]
     Active Substance: CODEINE
     Route: 048
     Dates: start: 20200619
  22. MODERNA COVID-19 VACCINE [Concomitant]
     Active Substance: ELASOMERAN
     Indication: Prophylaxis
     Route: 030
     Dates: start: 20220401, end: 20220401
  23. SOTROVIMAB [Concomitant]
     Active Substance: SOTROVIMAB
     Route: 042
     Dates: start: 202201
  24. CILIQUE [Concomitant]
     Indication: Prophylaxis
     Route: 048
     Dates: start: 2020

REACTIONS (1)
  - COVID-19 [Recovered/Resolved]

NARRATIVE: CASE EVENT DATE: 20220101
